FAERS Safety Report 25399608 (Version 1)
Quarter: 2025Q2

REPORT INFORMATION
  Report Type: Report from Study
  Country: US (occurrence: US)
  Receive Date: 20250605
  Receipt Date: 20250605
  Transmission Date: 20250716
  Serious: Yes (Other)
  Sender: ABBVIE
  Company Number: US-ABBVIE-6310110

PATIENT
  Age: 50 Year
  Sex: Female

DRUGS (1)
  1. RINVOQ [Suspect]
     Active Substance: UPADACITINIB
     Indication: Rheumatoid arthritis
     Route: 048
     Dates: start: 2024

REACTIONS (4)
  - Knee operation [Recovering/Resolving]
  - Memory impairment [Recovering/Resolving]
  - Finger deformity [Unknown]
  - Cardiomegaly [Recovering/Resolving]

NARRATIVE: CASE EVENT DATE: 20240101
